FAERS Safety Report 10244128 (Version 1)
Quarter: 2014Q2

REPORT INFORMATION
  Report Type: Spontaneous
  Country: US (occurrence: None)
  Receive Date: 20140616
  Receipt Date: 20140616
  Transmission Date: 20141212
  Serious: Yes (Disabling)
  Sender: FDA-Public Use
  Company Number: None

PATIENT
  Age: 65 Year
  Sex: Female
  Weight: 55.79 kg

DRUGS (1)
  1. PROLIA 60MG/ML AMGEN [Suspect]
     Indication: OSTEOPOROSIS PROPHYLAXIS
     Dosage: SYRINGE 1 ML GIVEN INTO/UNDER THE SKIN
     Route: 058
     Dates: start: 20131212, end: 20140612

REACTIONS (4)
  - Back pain [None]
  - Musculoskeletal pain [None]
  - Pain in extremity [None]
  - Arthralgia [None]
